FAERS Safety Report 8997433 (Version 2)
Quarter: 2013Q1

REPORT INFORMATION
  Report Type: Spontaneous
  Country: GB (occurrence: GB)
  Receive Date: 20130104
  Receipt Date: 20130111
  Transmission Date: 20140127
  Serious: Yes (Other)
  Sender: FDA-Public Use
  Company Number: GB-PFIZER INC-2013002817

PATIENT
  Age: 13 Week
  Sex: Female

DRUGS (2)
  1. CALPROFEN [Suspect]
     Indication: TEETHING
     Dosage: UNK
     Route: 065
  2. CALPOL [Suspect]
     Indication: TEETHING
     Dosage: UNK
     Route: 065

REACTIONS (3)
  - Eczema infected [Unknown]
  - Sleep disorder [Unknown]
  - Drug ineffective [Unknown]
